FAERS Safety Report 13285178 (Version 2)
Quarter: 2017Q1

REPORT INFORMATION
  Report Type: Spontaneous
  Country: HR (occurrence: HR)
  Receive Date: 20170301
  Receipt Date: 20170310
  Transmission Date: 20170428
  Serious: Yes (Other)
  Sender: FDA-Public Use
  Company Number: HR-JNJFOC-20170226202

PATIENT
  Age: 68 Year
  Sex: Male

DRUGS (5)
  1. SORTIS [Concomitant]
     Active Substance: ATORVASTATIN
     Indication: DYSLIPIDAEMIA
     Dosage: DOSAGE: AT HOUR OF SLEEP
     Route: 065
  2. LORISTA H [Concomitant]
     Active Substance: HYDROCHLOROTHIAZIDE\LOSARTAN POTASSIUM
     Route: 065
  3. XARELTO [Suspect]
     Active Substance: RIVAROXABAN
     Indication: ATRIAL FIBRILLATION
     Route: 048
     Dates: start: 201410
  4. RYTMONORM [Concomitant]
     Active Substance: PROPAFENONE
     Dosage: DOSAGE TEXT: 300 MG IN MORNING AND 150 MG AT AROUND 7 PM
     Route: 065
     Dates: end: 20150128
  5. BISOPROLOL FUMARATE. [Concomitant]
     Active Substance: BISOPROLOL FUMARATE
     Indication: HEART RATE ABNORMAL
     Route: 065

REACTIONS (2)
  - Blood pressure increased [Unknown]
  - Syncope [Unknown]

NARRATIVE: CASE EVENT DATE: 20150128
